FAERS Safety Report 5027661-0 (Version None)
Quarter: 2006Q2

REPORT INFORMATION
  Report Type: 
  Country: None (occurrence: None)
  Receive Date: 20060616
  Receipt Date: 20060609
  Transmission Date: 20061013
  Serious: Yes (Other)
  Sender: FDA-Public Use
  Company Number: GB-JNJFOC-20060602670

PATIENT
  Age: 44 Year
  Sex: Male

DRUGS (3)
  1. RISPERDAL [Suspect]
     Indication: PARANOIA
     Route: 065
  2. RISPERDAL [Suspect]
     Indication: ANXIETY
     Dosage: 2MG AM AND 6MG PM
     Route: 065
  3. SERTRALINE [Concomitant]

REACTIONS (1)
  - ATRIOVENTRICULAR BLOCK FIRST DEGREE [None]
